FAERS Safety Report 21821676 (Version 2)
Quarter: 2023Q1

REPORT INFORMATION
  Report Type: Spontaneous
  Country: TR (occurrence: TR)
  Receive Date: 20230105
  Receipt Date: 20230110
  Transmission Date: 20230418
  Serious: Yes (Life-Threatening, Hospitalization, Other)
  Sender: FDA-Public Use
  Company Number: TR-TILLOTTSAB-20220413

PATIENT
  Age: 40 Year
  Sex: Female

DRUGS (6)
  1. FIDAXOMICIN [Suspect]
     Active Substance: FIDAXOMICIN
     Indication: Diarrhoea
     Route: 048
  2. VANCOMYCIN [Suspect]
     Active Substance: VANCOMYCIN
     Indication: Diarrhoea
     Dosage: 4 X 125 MILLIGRAM IN 1 DAY
     Route: 048
  3. METRONIDAZOLE [Suspect]
     Active Substance: METRONIDAZOLE
     Dosage: 4 X 500 MILLIGRAM IN 1 DAY
     Route: 042
  4. ORNIDAZOLE [Concomitant]
     Active Substance: ORNIDAZOLE
     Indication: Giardiasis
     Dosage: UNK
  5. NITROFURANTOIN [Concomitant]
     Active Substance: NITROFURANTOIN
     Indication: Urinary tract infection
  6. MEROPENEM [Concomitant]
     Active Substance: MEROPENEM
     Dosage: UNK

REACTIONS (2)
  - Drug ineffective [Recovered/Resolved]
  - Exposure during pregnancy [Recovered/Resolved]
